FAERS Safety Report 6855055-1 (Version None)
Quarter: 2010Q3

REPORT INFORMATION
  Report Type: 
  Country: None (occurrence: None)
  Receive Date: 20100717
  Receipt Date: 20081125
  Transmission Date: 20110219
  Serious: Yes (Other)
  Sender: FDA-Public Use
  Company Number: US-PFIZER INC-2007108616

PATIENT
  Sex: Female

DRUGS (7)
  1. CHANTIX [Suspect]
     Indication: SMOKING CESSATION THERAPY
     Dosage: UNK
     Dates: start: 20061220
  2. XANAX [Concomitant]
     Dosage: 0.5 MG, 2X/DAY
  3. ZYPREXA [Concomitant]
     Dosage: 5 MG, 1X/DAY
  4. PAXIL [Concomitant]
     Dosage: 37.5 MG, 1X/DAY
  5. GLUCOPHAGE [Concomitant]
     Dosage: 1000 MG, 2X/DAY
  6. ACTOS [Concomitant]
     Dosage: 30 MG, 1X/DAY
  7. LISINOPRIL [Concomitant]
     Dosage: 10 MG, 1X/DAY

REACTIONS (1)
  - SYNCOPE [None]
